FAERS Safety Report 6496470-8 (Version None)
Quarter: 2009Q4

REPORT INFORMATION
  Report Type: 
  Country: None (occurrence: None)
  Receive Date: 20091214
  Receipt Date: 20091207
  Transmission Date: 20100525
  Serious: Yes (Death, Life-Threatening, Hospitalization)
  Sender: FDA-Public Use
  Company Number: FR-SANOFI-AVENTIS-2009SA007514

PATIENT
  Age: 75 Year
  Sex: Male
  Weight: 87 kg

DRUGS (15)
  1. BLINDED THERAPY [Suspect]
     Route: 042
     Dates: start: 20091204, end: 20091204
  2. BLINDED THERAPY [Suspect]
     Route: 042
     Dates: start: 20091113, end: 20091113
  3. DOCETAXEL [Suspect]
     Route: 042
     Dates: start: 20091204, end: 20091204
  4. DOCETAXEL [Suspect]
     Route: 042
     Dates: start: 20091113, end: 20091113
  5. PREDNISONE [Suspect]
     Route: 048
     Dates: start: 20091113, end: 20091204
  6. DECAPEPTYL /SWE/ [Concomitant]
     Indication: HORMONE REPLACEMENT THERAPY
     Dates: start: 19990101
  7. TAHOR [Concomitant]
  8. ACEBUTOLOL [Concomitant]
     Dates: start: 19890101
  9. DIGOXIN [Concomitant]
     Dates: start: 19890101
  10. ALLOPURINOL [Concomitant]
  11. FUROSEMIDE [Concomitant]
     Dates: start: 19890101
  12. ATACAND [Concomitant]
  13. DAONIL SEMI [Concomitant]
     Dates: start: 20060101
  14. SINTROM [Concomitant]
     Dates: start: 20060101
  15. LOVENOX [Concomitant]
     Dates: start: 20091124, end: 20091201

REACTIONS (1)
  - CEREBROVASCULAR ACCIDENT [None]
